FAERS Safety Report 9800052 (Version 2)
Quarter: 2014Q1

REPORT INFORMATION
  Report Type: Spontaneous
  Country: US (occurrence: US)
  Receive Date: 20140106
  Receipt Date: 20140106
  Transmission Date: 20141002
  Serious: No
  Sender: FDA-Public Use
  Company Number: US-GILEAD-2010-0032136

PATIENT
  Sex: Female
  Weight: 74.84 kg

DRUGS (13)
  1. LETAIRIS [Suspect]
     Indication: PULMONARY ARTERIAL HYPERTENSION
     Route: 048
     Dates: start: 20100902, end: 20100928
  2. COUMADIN [Concomitant]
  3. DIGOXIN [Concomitant]
  4. METOPROLOL ER [Concomitant]
  5. LASIX [Concomitant]
  6. POTASSIUM CHLORIDE [Concomitant]
  7. ADVAIR [Concomitant]
  8. LEVEMIR FLEXPEN [Concomitant]
  9. NOVOLOG [Concomitant]
  10. CRESTOR [Concomitant]
  11. SYNTHROID [Concomitant]
  12. ALPRAZOLAM [Concomitant]
  13. PREDNISONE [Concomitant]

REACTIONS (3)
  - Oedema [Unknown]
  - Flushing [Unknown]
  - Palpitations [Unknown]
